FAERS Safety Report 4723244-8 (Version None)
Quarter: 2005Q3

REPORT INFORMATION
  Report Type: 
  Country: None (occurrence: None)
  Receive Date: 20050719
  Receipt Date: 20040825
  Transmission Date: 20060218
  Serious: Yes (Hospitalization)
  Sender: FDA-Public Use
  Company Number: 203676

PATIENT
  Sex: Female
  Weight: 74.8435 kg

DRUGS (3)
  1. AVONEX [Suspect]
     Dosage: 30 UG; QW; IM, 30 UG; QW; IM
     Route: 030
     Dates: end: 20040811
  2. AVONEX [Suspect]
     Dosage: 30 UG; QW; IM, 30 UG; QW; IM
     Route: 030
     Dates: start: 20010101
  3. AZATHIOPRINE [Concomitant]

REACTIONS (7)
  - AMNESIA [None]
  - DEPRESSION [None]
  - GRAND MAL CONVULSION [None]
  - INFLUENZA LIKE ILLNESS [None]
  - MULTIPLE SCLEROSIS RELAPSE [None]
  - MUSCULOSKELETAL STIFFNESS [None]
  - WEIGHT DECREASED [None]
